FAERS Safety Report 17388000 (Version 3)
Quarter: 2021Q2

REPORT INFORMATION
  Report Type: Spontaneous
  Country: US (occurrence: US)
  Receive Date: 20200206
  Receipt Date: 20210521
  Transmission Date: 20210716
  Serious: No
  Sender: FDA-Public Use
  Company Number: US-RADIUS HEALTH INC.-2020US000215

PATIENT
  Age: 80 Year
  Sex: Female

DRUGS (1)
  1. TYMLOS [Suspect]
     Active Substance: ABALOPARATIDE
     Indication: OSTEOPOROSIS POSTMENOPAUSAL
     Dosage: 80 MCG, DAILY
     Route: 058
     Dates: start: 20200113

REACTIONS (11)
  - Paraesthesia [Recovered/Resolved]
  - Palpitations [Recovered/Resolved]
  - Lower respiratory tract infection [Unknown]
  - Wrong technique in product usage process [Recovered/Resolved]
  - Heart rate increased [Recovered/Resolved]
  - Panic reaction [Recovering/Resolving]
  - Visual acuity reduced [Not Recovered/Not Resolved]
  - Feeling hot [Recovered/Resolved]
  - Pain [Not Recovered/Not Resolved]
  - Incorrect dose administered by device [Recovered/Resolved]
  - Product quality issue [Unknown]

NARRATIVE: CASE EVENT DATE: 20200113
